FAERS Safety Report 9308956 (Version 1)
Quarter: 2013Q2

REPORT INFORMATION
  Report Type: Spontaneous
  Country: GB (occurrence: GB)
  Receive Date: 20130524
  Receipt Date: 20130524
  Transmission Date: 20140414
  Serious: Yes (Other)
  Sender: FDA-Public Use
  Company Number: PHHY2013GB050636

PATIENT
  Age: 36 Year
  Sex: Female
  Weight: 68.49 kg

DRUGS (2)
  1. ACNOCIN [Suspect]
     Indication: ACNE
     Dates: start: 20130430
  2. CLOBETASONE BUTYRATE [Concomitant]
     Dates: start: 20130325, end: 20130422

REACTIONS (2)
  - Crying [Recovering/Resolving]
  - Headache [Recovering/Resolving]
